FAERS Safety Report 8966868 (Version 2)
Quarter: 2012Q4

REPORT INFORMATION
  Report Type: 
  Country: PH (occurrence: PH)
  Receive Date: 20121214
  Receipt Date: 20121218
  Transmission Date: 20130627
  Serious: Yes (Death, Hospitalization)
  Sender: FDA-Public Use
  Company Number: PH-009507513-1212PHL004147

PATIENT
  Age: 83 Year
  Sex: Male

DRUGS (4)
  1. JANUVIA [Suspect]
     Indication: DIABETES MELLITUS
     Dosage: 1 DF, bid
     Route: 048
     Dates: start: 201203
  2. GLIMEPIRIDE [Concomitant]
  3. SIMVASTATIN [Concomitant]
  4. LOSARTAN POTASSIUM [Concomitant]
     Indication: HYPERTENSION

REACTIONS (7)
  - Blood glucose abnormal [Fatal]
  - Pneumonia [Fatal]
  - Eating disorder [Unknown]
  - Blood glucose increased [Unknown]
  - Blood glucose decreased [Unknown]
  - Fatigue [Unknown]
  - Wound [Unknown]
